FAERS Safety Report 7038577-2 (Version None)
Quarter: 2010Q4

REPORT INFORMATION
  Report Type: 
  Country: None (occurrence: None)
  Receive Date: 20101011
  Receipt Date: 20101005
  Transmission Date: 20110411
  Serious: Yes (Life-Threatening)
  Sender: FDA-Public Use
  Company Number: GB-PFIZER INC-2010126545

PATIENT
  Age: 88 Year
  Sex: Male

DRUGS (1)
  1. ZYVOX [Suspect]
     Indication: SPINAL CORD INFECTION
     Dosage: 600 MG, 2X/DAY
     Route: 048
     Dates: start: 20100820, end: 20100913

REACTIONS (2)
  - CONVULSION [None]
  - ENCEPHALOPATHY [None]
